FAERS Safety Report 7597900-0 (Version None)
Quarter: 2011Q3

REPORT INFORMATION
  Report Type: 
  Country: None (occurrence: None)
  Receive Date: 20110708
  Receipt Date: 20110627
  Transmission Date: 20111222
  Serious: No
  Sender: FDA-Public Use
  Company Number: US-PFIZER INC-2011143851

PATIENT
  Age: 78 Year
  Sex: Female

DRUGS (10)
  1. MICRONASE [Suspect]
     Dosage: UNK
  2. ALPHA LIPOIC ACID [Concomitant]
     Dosage: UNK
  3. MIRALAX [Suspect]
     Indication: CONSTIPATION
     Dosage: UNK
     Route: 048
     Dates: start: 20110601
  4. CARDURA [Concomitant]
     Dosage: UNK
  5. LOPRESSOR [Concomitant]
     Dosage: UNK
  6. GLUCOPHAGE [Concomitant]
     Dosage: UNK
  7. PRESERVISION SOFTGELS WITH LUTEIN [Concomitant]
     Dosage: UNK
  8. ZOCOR [Concomitant]
     Dosage: UNK
  9. ASPIRIN [Concomitant]
     Dosage: UNK
  10. MIRALAX [Suspect]
     Indication: ABNORMAL FAECES

REACTIONS (1)
  - BLOOD SODIUM DECREASED [None]
